FAERS Safety Report 7201838-8 (Version None)
Quarter: 2010Q4

REPORT INFORMATION
  Report Type: 
  Country: None (occurrence: None)
  Receive Date: 20101229
  Receipt Date: 20101015
  Transmission Date: 20110411
  Serious: Yes (Hospitalization, Other)
  Sender: FDA-Public Use
  Company Number: US-BAYER-200937495NA

PATIENT
  Sex: Female
  Weight: 68.182 kg

DRUGS (25)
  1. YASMIN [Suspect]
     Indication: GENITAL HAEMORRHAGE
     Dosage: FROM FEB 2005 TO FEB 2007. ALSO STATED FROM APR-2006 TO DEC-2007 AND FROM FEB-2005 TO DEC-2007
     Route: 048
     Dates: start: 20050201, end: 20071201
  2. YAZ [Suspect]
     Indication: GENITAL HAEMORRHAGE
     Route: 048
  3. SYNTHROID [Concomitant]
     Dosage: 50 A?G (DAILY DOSE), QD, UNKNOWN
     Route: 065
  4. SYNTHROID [Concomitant]
     Route: 065
     Dates: start: 20090222
  5. ZOVIRAX [Concomitant]
     Route: 065
  6. LEXAPRO [Concomitant]
     Dosage: DAILY. ON 21-NOV-2007 SHE WAS ON LEXAPRO
     Route: 065
  7. LEXAPRO [Concomitant]
     Route: 065
     Dates: start: 20090222
  8. PROMETRIUM [Concomitant]
     Route: 065
  9. SEPTRA DS [Concomitant]
     Route: 048
  10. E.E.S. [Concomitant]
     Dosage: ORAL WITH FOOD, FOUR TIMES A DAY
     Route: 048
  11. DIFLUCAN [Concomitant]
     Dosage: INSTRUCTIONS: REPEAT IN 7 DAYS IF NEEDED.
     Route: 048
  12. PHENERGAN [Concomitant]
     Route: 042
     Dates: start: 20071202
  13. COUMADIN [Concomitant]
     Route: 065
     Dates: start: 20080416
  14. COUMADIN [Concomitant]
     Route: 065
     Dates: start: 20080430
  15. COUMADIN [Concomitant]
     Route: 065
     Dates: end: 20080528
  16. CELEXA [Concomitant]
  17. PROTONIX [Concomitant]
  18. ADVAIR [Concomitant]
     Dosage: 250/50
     Route: 065
  19. ANAPROX DS [Concomitant]
     Dosage: FOR 2 DAYS, BEFORE PERIOD
     Route: 048
  20. VENTOLIN [Concomitant]
     Route: 065
  21. MACROBID [Concomitant]
     Indication: CYSTITIS
     Route: 048
     Dates: start: 20090515
  22. CELEBREX [Concomitant]
     Route: 065
     Dates: start: 20100209
  23. XANAX [Concomitant]
     Route: 065
  24. UNKNOWN DRUG [Concomitant]
     Indication: THYROID DISORDER
  25. ZOVIRAX [Concomitant]
     Route: 065

REACTIONS (8)
  - BREAST MASS [None]
  - CHEST PAIN [None]
  - DEEP VEIN THROMBOSIS [None]
  - DYSPNOEA [None]
  - NAUSEA [None]
  - OEDEMA PERIPHERAL [None]
  - PAIN IN EXTREMITY [None]
  - PULMONARY EMBOLISM [None]
